FAERS Safety Report 6227508-0 (Version None)
Quarter: 2009Q2

REPORT INFORMATION
  Report Type: 
  Country: None (occurrence: None)
  Receive Date: 20090612
  Receipt Date: 20090610
  Transmission Date: 20091009
  Serious: Yes (Death)
  Sender: FDA-Public Use
  Company Number: PHEH2009US05980

PATIENT
  Sex: Male

DRUGS (3)
  1. AREDIA [Suspect]
  2. ZOMETA [Suspect]
  3. SANDOSTATIN [Suspect]

REACTIONS (1)
  - DEATH [None]
